FAERS Safety Report 7965870-9 (Version None)
Quarter: 2011Q4

REPORT INFORMATION
  Report Type: 
  Country: None (occurrence: None)
  Receive Date: 20111208
  Receipt Date: 20110506
  Transmission Date: 20120403
  Serious: Yes (Hospitalization)
  Sender: FDA-Public Use
  Company Number: US-GLAXOSMITHKLINE-A0927181A

PATIENT
  Age: 43 Year
  Sex: Male
  Weight: 88 kg

DRUGS (15)
  1. LASIX [Concomitant]
     Dosage: 80MG PER DAY
  2. SYNTHROID [Concomitant]
     Dosage: 50MCG PER DAY
  3. VIAGRA [Concomitant]
     Dosage: 100MG THREE TIMES PER DAY
  4. DIGOXIN [Concomitant]
  5. SPIRONOLACTONE [Concomitant]
     Dosage: 50MG PER DAY
  6. PACERONE [Concomitant]
     Dosage: 200MG TWICE PER DAY
  7. COUMADIN [Concomitant]
  8. METOPROLOL TARTRATE [Concomitant]
     Dosage: 25MG PER DAY
  9. POTASSIUM CHLORIDE [Concomitant]
     Dosage: 20MEQ TWICE PER DAY
  10. CITALOPRAM [Concomitant]
     Dosage: 20MG PER DAY
  11. ASPIRIN [Concomitant]
     Dosage: 81MG PER DAY
  12. TRACLEER [Concomitant]
     Dosage: 62.5MG TWICE PER DAY
  13. CLARITIN [Concomitant]
     Dosage: 10MG AS REQUIRED
  14. FLOLAN [Suspect]
     Indication: PULMONARY ARTERIAL HYPERTENSION
     Route: 065
     Dates: start: 20041001
  15. ROMIPLOSTIM [Concomitant]
     Dosage: 90MCG WEEKLY
     Route: 058

REACTIONS (6)
  - HAEMORRHAGE [None]
  - VASODILATATION [None]
  - PAIN IN EXTREMITY [None]
  - DIARRHOEA [None]
  - ERYTHEMA [None]
  - HEADACHE [None]
